FAERS Safety Report 9137065 (Version 2)
Quarter: 2014Q1

REPORT INFORMATION
  Report Type: Spontaneous
  Country: US (occurrence: US)
  Receive Date: 20130219
  Receipt Date: 20140213
  Transmission Date: 20141002
  Serious: No
  Sender: FDA-Public Use
  Company Number: US-BRISTOL-MYERS SQUIBB COMPANY-16793523

PATIENT
  Age: 60 Year
  Sex: Female
  Weight: 58.5 kg

DRUGS (1)
  1. ABATACEPT SUBQ INJECTION 125MG/ML [Suspect]
     Indication: RHEUMATOID ARTHRITIS
     Dosage: LAST DOSE FEB 2012?LOT#2H62381,MAR14
     Dates: start: 2012, end: 201301

REACTIONS (4)
  - Vaginal infection [Unknown]
  - Cystitis [Unknown]
  - Fungal infection [Unknown]
  - Tendonitis [Unknown]
